FAERS Safety Report 24044971 (Version 2)
Quarter: 2024Q3

REPORT INFORMATION
  Report Type: Spontaneous
  Country: US (occurrence: US)
  Receive Date: 20240703
  Receipt Date: 20240703
  Transmission Date: 20241017
  Serious: No
  Sender: CADILA
  Company Number: US-CPL-004024

PATIENT
  Sex: Female

DRUGS (2)
  1. VERAPAMIL [Suspect]
     Active Substance: VERAPAMIL HYDROCHLORIDE
     Indication: Product used for unknown indication
     Dosage: ER TABLETS; STRENGTH: 180MG; FIRST DOSE
     Route: 048
     Dates: start: 20240217, end: 20240217
  2. VERAPAMIL [Suspect]
     Active Substance: VERAPAMIL HYDROCHLORIDE
     Indication: Product used for unknown indication
     Dosage: ER TABLETS; STRENGTH: 180MG; SECOND DOSE
     Dates: start: 20240217, end: 20240217

REACTIONS (2)
  - Extra dose administered [Unknown]
  - Dizziness [Recovered/Resolved]

NARRATIVE: CASE EVENT DATE: 20240217
